FAERS Safety Report 10384571 (Version 1)
Quarter: 2014Q3

REPORT INFORMATION
  Report Type: Spontaneous
  Country: GB (occurrence: GB)
  Receive Date: 20140814
  Receipt Date: 20140814
  Transmission Date: 20150326
  Serious: Yes (Other)
  Sender: FDA-Public Use
  Company Number: GB-TEVA-500100ISR

PATIENT
  Age: 42 Year
  Sex: Male

DRUGS (5)
  1. IFOSFAMIDE. [Suspect]
     Active Substance: IFOSFAMIDE
     Indication: IMMUNOSUPPRESSION
     Route: 065
     Dates: start: 200605
  2. ETOPOSIDE. [Suspect]
     Active Substance: ETOPOSIDE
     Indication: IMMUNOSUPPRESSION
     Route: 065
     Dates: start: 200605
  3. CICLOSPORIN [Suspect]
     Active Substance: CYCLOSPORINE
     Indication: IMMUNOSUPPRESSION
     Dosage: MAY/2006 - OVT/2006 AND NOV/2006 - AUG/2007
     Route: 065
     Dates: start: 200605, end: 200708
  4. CARBOPLATIN. [Suspect]
     Active Substance: CARBOPLATIN
     Indication: IMMUNOSUPPRESSION
     Route: 065
     Dates: start: 200605
  5. RITUXIMAB [Suspect]
     Active Substance: RITUXIMAB
     Indication: IMMUNOSUPPRESSION
     Dosage: 4 CYCLES
     Route: 065
     Dates: start: 200802

REACTIONS (3)
  - Hypogammaglobulinaemia [Recovering/Resolving]
  - Respiratory tract infection [Unknown]
  - Cellulitis [Unknown]

NARRATIVE: CASE EVENT DATE: 2011
